FAERS Safety Report 5256814-1 (Version None)
Quarter: 2007Q1

REPORT INFORMATION
  Report Type: 
  Country: None (occurrence: None)
  Receive Date: 20070306
  Receipt Date: 20061213
  Transmission Date: 20070707
  Serious: Yes (Hospitalization)
  Sender: FDA-Public Use
  Company Number: CH-BOEHRINGER INGELHEIM PHARMACEUTICALS, INC.-2007-BP-03026YA

PATIENT
  Sex: Male

DRUGS (12)
  1. OMNIC OCAS ORODISPERSABLE CR [Suspect]
     Route: 065
  2. NITROGLYCERIN [Concomitant]
     Indication: CARDIOVASCULAR DISORDER
  3. ASPIRIN [Concomitant]
     Indication: CARDIOVASCULAR DISORDER
  4. ISOKET [Concomitant]
     Indication: CARDIOVASCULAR DISORDER
  5. CONCOR [Concomitant]
     Indication: CARDIOVASCULAR DISORDER
  6. SERTRALIN [Concomitant]
     Indication: DEPRESSION
  7. LORAZEPAM [Concomitant]
     Indication: DEPRESSION
  8. ACETAMINOPHEN AND TRAMADOL HCL [Concomitant]
     Indication: FIBROMYALGIA
  9. CONDROSULF [Concomitant]
  10. METFIN [Concomitant]
     Indication: DIABETES MELLITUS
  11. ATORVASTATIN CALCIUM [Concomitant]
     Indication: BLOOD CHOLESTEROL INCREASED
  12. REMERON [Concomitant]
     Indication: INSOMNIA

REACTIONS (1)
  - DEPRESSION [None]
